FAERS Safety Report 25623243 (Version 1)
Quarter: 2025Q3

REPORT INFORMATION
  Report Type: Spontaneous
  Country: US (occurrence: US)
  Receive Date: 20250730
  Receipt Date: 20250730
  Transmission Date: 20251020
  Serious: No
  Sender: INSUD PHARMA
  Company Number: US-INSUD PHARMA-2507US06077

PATIENT

DRUGS (2)
  1. SLYND [Suspect]
     Active Substance: DROSPIRENONE
     Indication: Product used for unknown indication
     Route: 048
  2. SLYND [Suspect]
     Active Substance: DROSPIRENONE
     Route: 048
     Dates: start: 2023

REACTIONS (1)
  - Breast pain [Unknown]
